FAERS Safety Report 5712405-7 (Version None)
Quarter: 2008Q2

REPORT INFORMATION
  Report Type: 
  Country: None (occurrence: None)
  Receive Date: 20080422
  Receipt Date: 20080407
  Transmission Date: 20081010
  Serious: Yes (Death, Hospitalization, Other)
  Sender: FDA-Public Use
  Company Number: US-ROCHE-558120

PATIENT

DRUGS (4)
  1. DACLIZUMAB [Suspect]
     Indication: RENAL TRANSPLANT
     Route: 065
  2. MYCOPHENOLATE MOFETIL [Suspect]
     Indication: RENAL TRANSPLANT
     Route: 065
  3. TACROLIMUS [Suspect]
     Indication: RENAL TRANSPLANT
     Route: 065
  4. METHYLPREDNISOLONE [Suspect]
     Indication: RENAL TRANSPLANT
     Route: 042

REACTIONS (8)
  - ADENOCARCINOMA [None]
  - DEATH [None]
  - DIABETES MELLITUS [None]
  - INFECTION [None]
  - LEUKOPENIA [None]
  - PNEUMONIA [None]
  - RENAL FAILURE [None]
  - SEPSIS [None]
